FAERS Safety Report 10831831 (Version 1)
Quarter: 2015Q1

REPORT INFORMATION
  Report Type: Spontaneous
  Country: US (occurrence: US)
  Receive Date: 20150219
  Receipt Date: 20150219
  Transmission Date: 20150721
  Serious: No
  Sender: FDA-Public Use
  Company Number: US-RECKITT BENCKISER PHARMACEUTICAL, INC-RB-72797-2014

PATIENT
  Age: 24 Year
  Sex: Male

DRUGS (2)
  1. SUBOXONE [Suspect]
     Active Substance: BUPRENORPHINE HYDROCHLORIDE\NALOXONE HYDROCHLORIDE
     Indication: PRODUCT USED FOR UNKNOWN INDICATION
     Dosage: UNK
     Route: 065
  2. SUBUTEX [Suspect]
     Active Substance: BUPRENORPHINE HYDROCHLORIDE
     Indication: PRODUCT USED FOR UNKNOWN INDICATION
     Dosage: UNK
     Route: 065

REACTIONS (8)
  - Activities of daily living impaired [Recovered/Resolved]
  - Aversion [Recovered/Resolved]
  - Condition aggravated [Recovered/Resolved]
  - Substance abuse [Recovered/Resolved]
  - Speech disorder [Recovered/Resolved]
  - Nausea [Recovered/Resolved]
  - Decreased interest [Recovered/Resolved]
  - Sluggishness [Recovered/Resolved]
